FAERS Safety Report 23260100 (Version 1)
Quarter: 2023Q4

REPORT INFORMATION
  Report Type: Spontaneous
  Country: US (occurrence: US)
  Receive Date: 20231204
  Receipt Date: 20231204
  Transmission Date: 20240109
  Serious: No
  Sender: FDA-Public Use
  Company Number: US-GILEAD-2023-0653318

PATIENT
  Age: 63 Year
  Sex: Male

DRUGS (1)
  1. LENACAPAVIR [Suspect]
     Active Substance: LENACAPAVIR
     Indication: HIV infection
     Dosage: UNK
     Route: 065
     Dates: start: 20230923

REACTIONS (2)
  - Injection site erythema [Not Recovered/Not Resolved]
  - Injection site deformation [Not Recovered/Not Resolved]

NARRATIVE: CASE EVENT DATE: 20230923
